FAERS Safety Report 5723438-9 (Version None)
Quarter: 2008Q2

REPORT INFORMATION
  Report Type: 
  Country: None (occurrence: None)
  Receive Date: 20080430
  Receipt Date: 20080422
  Transmission Date: 20081010
  Serious: Yes (Death)
  Sender: FDA-Public Use
  Company Number: US-BAYER-200813130NA

PATIENT
  Age: 36 Year
  Sex: Female
  Weight: 68 kg

DRUGS (3)
  1. AVELOX [Suspect]
     Indication: TONSILLITIS
     Dosage: TOTAL DAILY DOSE: 400 MG  UNIT DOSE: 400 MG
     Route: 048
     Dates: start: 20070929
  2. XANAX [Concomitant]
     Dosage: TOTAL DAILY DOSE: 3 MG
  3. NEURONTIN [Concomitant]
     Dosage: TOTAL DAILY DOSE: 600 MG

REACTIONS (1)
  - DEATH [None]
